FAERS Safety Report 13699347 (Version 1)
Quarter: 2017Q2

REPORT INFORMATION
  Report Type: Spontaneous
  Country: US (occurrence: US)
  Receive Date: 20170628
  Receipt Date: 20170628
  Transmission Date: 20170830
  Serious: Yes (Hospitalization)
  Sender: FDA-Public Use
  Company Number: US-VIFOR (INTERNATIONAL) INC.-VIT-2017-00046

PATIENT
  Age: 73 Year
  Sex: Male

DRUGS (24)
  1. NEXIUM [Concomitant]
     Active Substance: ESOMEPRAZOLE MAGNESIUM
  2. INSULIN [Concomitant]
     Active Substance: INSULIN NOS
     Dosage: BED TIME
  3. ALBUTEROL. [Concomitant]
     Active Substance: ALBUTEROL
  4. CENTRUM SILVER MULTIVITAMIN [Concomitant]
  5. VELTASSA [Suspect]
     Active Substance: PATIROMER
     Indication: HYPERKALAEMIA
     Route: 065
     Dates: start: 20161018, end: 20161227
  6. TRADJENTA [Concomitant]
     Active Substance: LINAGLIPTIN
  7. FLOMAX [Concomitant]
     Active Substance: TAMSULOSIN HYDROCHLORIDE
  8. TICAGRELOR [Concomitant]
     Active Substance: TICAGRELOR
  9. VERAPAMIL [Concomitant]
     Active Substance: VERAPAMIL HYDROCHLORIDE
  10. FLOVENT [Concomitant]
     Active Substance: FLUTICASONE PROPIONATE
  11. AMIODARONE [Concomitant]
     Active Substance: AMIODARONE
  12. TRICOR [Concomitant]
     Active Substance: FENOFIBRATE
  13. HYDRALAZINE [Concomitant]
     Active Substance: HYDRALAZINE HYDROCHLORIDE
  14. ACETYLSALICYLIC ACID [Concomitant]
     Active Substance: ASPIRIN
  15. CAFFEINE. [Concomitant]
     Active Substance: CAFFEINE
  16. FUROSEMIDE. [Concomitant]
     Active Substance: FUROSEMIDE
  17. LENTILS [Concomitant]
  18. GLYCERYL TRINITRATE [Concomitant]
     Active Substance: NITROGLYCERIN
     Indication: CHEST PAIN
     Dosage: 0.5 MG AS NEEDED
  19. ACETYLSALICYLIC ACID [Concomitant]
     Active Substance: ASPIRIN
  20. PARACETAMOL [Concomitant]
     Active Substance: ACETAMINOPHEN
  21. GLUCAGON. [Concomitant]
     Active Substance: GLUCAGON
     Dosage: 1MG FOR EMERGENCY
  22. HUMALOG [Concomitant]
     Active Substance: INSULIN LISPRO
     Dosage: 13 UNITS IN AM AND 18UNITS IN THE EVENING
  23. METOPROLOL TARTRATE. [Concomitant]
     Active Substance: METOPROLOL TARTRATE
  24. RENO SALINE [Concomitant]

REACTIONS (2)
  - Blister infected [Unknown]
  - Rash [Recovered/Resolved]

NARRATIVE: CASE EVENT DATE: 201612
